FAERS Safety Report 22611298 (Version 1)
Quarter: 2023Q2

REPORT INFORMATION
  Report Type: Spontaneous
  Country: US (occurrence: None)
  Receive Date: 20230615
  Receipt Date: 20230615
  Transmission Date: 20230721
  Serious: Yes (Hospitalization)
  Sender: FDA-Public Use
  Company Number: None

PATIENT
  Age: 58 Year
  Sex: Female

DRUGS (15)
  1. OPSUMIT [Suspect]
     Active Substance: MACITENTAN
     Indication: Pulmonary hypertension
     Dosage: FREQUENCY : DAILY;?
     Route: 048
     Dates: start: 20201119
  2. TADALAFIL [Concomitant]
     Active Substance: TADALAFIL
  3. SPIRONOLACTONE [Concomitant]
  4. BUMETANIDE [Concomitant]
     Active Substance: BUMETANIDE
  5. HUMULIN R [Concomitant]
     Active Substance: INSULIN HUMAN
  6. TYLENOL [Concomitant]
     Active Substance: ACETAMINOPHEN
  7. COLACE [Concomitant]
     Active Substance: DOCUSATE SODIUM
  8. DULCOLAX NOS [Concomitant]
     Active Substance: BISACODYL OR DOCUSATE SODIUM
  9. SENNA [Concomitant]
     Active Substance: SENNA LEAF\SENNOSIDES\SENNOSIDES A AND B
  10. LATINEX [Concomitant]
  11. OXYCODONE [Concomitant]
  12. VESICARE [Concomitant]
  13. OZEMPIC [Concomitant]
  14. FLONASE [Concomitant]
  15. ATORVASTATIN [Concomitant]

REACTIONS (2)
  - Abscess limb [None]
  - Staphylococcus test positive [None]

NARRATIVE: CASE EVENT DATE: 20230608
